FAERS Safety Report 15468879 (Version 3)
Quarter: 2018Q4

REPORT INFORMATION
  Report Type: Spontaneous
  Country: BR (occurrence: BR)
  Receive Date: 20181005
  Receipt Date: 20181217
  Transmission Date: 20190205
  Serious: Yes (Other)
  Sender: FDA-Public Use
  Company Number: BR-SA-2018SA273505

PATIENT
  Age: 38 Year
  Sex: Male
  Weight: 83 kg

DRUGS (6)
  1. RANITIDINE. [Concomitant]
     Active Substance: RANITIDINE
     Indication: PROPHYLAXIS AGAINST GASTROINTESTINAL ULCER
     Dosage: 100 MG, QD
     Route: 042
     Dates: start: 20180924
  2. CEFAZOLINE [CEFAZOLIN] [Concomitant]
     Indication: PROPHYLAXIS
     Dosage: 3 G, QD
     Route: 042
     Dates: start: 20180924, end: 20180925
  3. HYDROCORTISONE. [Concomitant]
     Active Substance: HYDROCORTISONE
     Indication: PREMEDICATION
     Dosage: 300 MG, QD
     Route: 042
     Dates: start: 20180924, end: 20180924
  4. METAMIZOLE SODIUM [Concomitant]
     Active Substance: METAMIZOLE SODIUM
     Indication: PREMEDICATION
     Dosage: 1000 MG, QD
     Route: 042
     Dates: start: 20180924, end: 20180924
  5. SODIUM CHLORIDE. [Concomitant]
     Active Substance: SODIUM CHLORIDE
     Indication: INFUSION
     Dosage: 500 ML, QD
     Route: 042
     Dates: start: 20180924, end: 20180925
  6. THYMOGLOBULINE [Suspect]
     Active Substance: LAPINE T-LYMPHOCYTE IMMUNE GLOBULIN
     Indication: IMMUNOSUPPRESSION
     Dosage: 250 MG, QD
     Route: 042
     Dates: start: 20180924, end: 20180925

REACTIONS (5)
  - Hypertension [Recovered/Resolved]
  - White blood cell count increased [Recovered/Resolved]
  - Bradycardia [Recovered/Resolved]
  - Haemoglobin decreased [Recovered/Resolved]
  - Haematocrit decreased [Recovered/Resolved]

NARRATIVE: CASE EVENT DATE: 20180924
